FAERS Safety Report 23494282 (Version 2)
Quarter: 2024Q1

REPORT INFORMATION
  Report Type: Spontaneous
  Country: CH (occurrence: None)
  Receive Date: 20240207
  Receipt Date: 20240214
  Transmission Date: 20240410
  Serious: Yes (Disabling)
  Sender: FDA-Public Use
  Company Number: 2024A019528

PATIENT
  Sex: Female
  Weight: 43 kg

DRUGS (2)
  1. FASENRA [Suspect]
     Active Substance: BENRALIZUMAB
     Indication: Asthma
     Dosage: 30MG 1X/2MONTHS
     Route: 058
     Dates: start: 20210104
  2. FASENRA [Suspect]
     Active Substance: BENRALIZUMAB
     Indication: Eosinophilic granulomatosis with polyangiitis
     Dosage: 30MG 1X/2MONTHS
     Route: 058
     Dates: start: 20210104

REACTIONS (1)
  - Whipple^s disease [Unknown]
